FAERS Safety Report 5801572-2 (Version None)
Quarter: 2008Q3

REPORT INFORMATION
  Report Type: 
  Country: None (occurrence: None)
  Receive Date: 20080703
  Receipt Date: 20080703
  Transmission Date: 20090109
  Serious: Yes (Death)
  Sender: FDA-Public Use
  Company Number: None

PATIENT
  Sex: Male
  Weight: 60 kg

DRUGS (4)
  1. FLUDARABINE PHOSPHATE [Suspect]
     Indication: CHRONIC MYELOID LEUKAEMIA
     Dosage: 30MG/M2 DAILY IV DRIP
     Route: 041
     Dates: start: 20080221, end: 20080225
  2. THIOTEPA [Suspect]
     Dosage: 5MG/KG DAILY IV DRIP
     Route: 041
     Dates: start: 20080221, end: 20080228
  3. THYMOGLOBULIN [Concomitant]
  4. TOTAL BODY IRRADIATION [Concomitant]

REACTIONS (8)
  - CEREBRAL DISORDER [None]
  - COMPLICATIONS OF TRANSPLANT SURGERY [None]
  - CONVULSION [None]
  - CYSTITIS HAEMORRHAGIC [None]
  - CYTOMEGALOVIRUS INFECTION [None]
  - MENTAL STATUS CHANGES [None]
  - NUCLEAR MAGNETIC RESONANCE IMAGING BRAIN ABNORMAL [None]
  - RENAL FAILURE [None]
